FAERS Safety Report 10248838 (Version 2)
Quarter: 2014Q2

REPORT INFORMATION
  Report Type: Report from Study
  Country: CA (occurrence: CA)
  Receive Date: 20140620
  Receipt Date: 20140626
  Transmission Date: 20141212
  Serious: Yes (Other)
  Sender: FDA-Public Use
  Company Number: CA-BAYER-2014-092500

PATIENT
  Age: 24 Year
  Sex: Female

DRUGS (1)
  1. MIRENA [Suspect]
     Indication: CONTRACEPTION
     Dosage: 20 MCG/24HR, CONT
     Route: 015
     Dates: start: 20140501, end: 20140614

REACTIONS (4)
  - Convulsion [Recovered/Resolved]
  - Device expulsion [Recovered/Resolved]
  - Post procedural haemorrhage [None]
  - Head injury [Recovered/Resolved]
